FAERS Safety Report 6906266-8 (Version None)
Quarter: 2010Q3

REPORT INFORMATION
  Report Type: 
  Country: None (occurrence: None)
  Receive Date: 20100803
  Receipt Date: 20100803
  Transmission Date: 20110219
  Serious: Yes (Hospitalization)
  Sender: FDA-Public Use
  Company Number: None

PATIENT
  Age: 30 Year
  Sex: Female

DRUGS (1)
  1. CHLORAPREP [Suspect]
     Dates: start: 20100715

REACTIONS (2)
  - ACCIDENTAL EXPOSURE [None]
  - SCRATCH [None]
